FAERS Safety Report 13701002 (Version 1)
Quarter: 2017Q2

REPORT INFORMATION
  Report Type: Spontaneous
  Country: US (occurrence: US)
  Receive Date: 20170629
  Receipt Date: 20170629
  Transmission Date: 20170830
  Serious: No
  Sender: FDA-Public Use
  Company Number: US-PFIZER INC-2017280762

PATIENT
  Age: 79 Year
  Sex: Female
  Weight: 40 kg

DRUGS (1)
  1. RELPAX [Suspect]
     Active Substance: ELETRIPTAN HYDROBROMIDE
     Indication: MIGRAINE
     Dosage: 20 MG, AS NEEDED

REACTIONS (1)
  - Abdominal pain upper [Not Recovered/Not Resolved]
